FAERS Safety Report 8969447 (Version 2)
Quarter: 2013Q2

REPORT INFORMATION
  Report Type: Spontaneous
  Country: JP (occurrence: JP)
  Receive Date: 20121218
  Receipt Date: 20130424
  Transmission Date: 20140414
  Serious: Yes (Hospitalization, Other)
  Sender: FDA-Public Use
  Company Number: JP-ABBOTT-12P-087-1022340-00

PATIENT
  Age: 81 Year
  Sex: Male
  Weight: 60.2 kg

DRUGS (10)
  1. CLARITH [Suspect]
     Indication: HELICOBACTER INFECTION
     Route: 048
     Dates: start: 20111029, end: 20111104
  2. EQUA [Suspect]
     Indication: DIABETES MELLITUS
     Route: 048
     Dates: start: 20111101, end: 20111110
  3. SAWACILLIN [Concomitant]
     Indication: HELICOBACTER INFECTION
     Route: 048
     Dates: start: 20111029, end: 20111104
  4. PARIET [Concomitant]
     Indication: HELICOBACTER INFECTION
     Route: 048
     Dates: start: 20111029, end: 20111104
  5. NEUCHLONIC [Concomitant]
     Indication: INSOMNIA
     Route: 048
     Dates: start: 20111025, end: 20111109
  6. PURSENNID [Concomitant]
     Indication: CONSTIPATION
     Route: 048
     Dates: start: 20111003
  7. CETILO [Concomitant]
     Indication: CONSTIPATION
     Route: 048
     Dates: start: 20111104, end: 20111110
  8. BENIDIPINE HYDROCHLORIDE [Concomitant]
     Indication: HYPERTENSION
     Route: 048
     Dates: start: 20110711
  9. ZYLORIC [Concomitant]
     Indication: HYPERURICAEMIA
     Route: 048
     Dates: start: 20110808, end: 20111116
  10. ROZEREM [Concomitant]
     Indication: INSOMNIA
     Route: 048
     Dates: start: 20111003, end: 20111110

REACTIONS (1)
  - Generalised erythema [Recovered/Resolved]
